FAERS Safety Report 10208716 (Version 1)
Quarter: 2014Q2

REPORT INFORMATION
  Report Type: Spontaneous
  Country: CZ (occurrence: CZ)
  Receive Date: 20140530
  Receipt Date: 20140530
  Transmission Date: 20141212
  Serious: Yes (Hospitalization)
  Sender: FDA-Public Use
  Company Number: CZ-B.I. PHARMACEUTICALS,INC./RIDGEFIELD-2014-BI-23628CZ

PATIENT
  Age: 55 Year
  Sex: Male

DRUGS (11)
  1. ATROVENT [Suspect]
     Indication: CHRONIC OBSTRUCTIVE PULMONARY DISEASE
     Route: 055
  2. ACE-INHIBITOR [Concomitant]
     Route: 065
  3. DIURETICS [Concomitant]
     Route: 065
  4. STATINE [Concomitant]
     Route: 065
  5. FIBRATE [Concomitant]
     Route: 065
  6. DIGOXINE [Concomitant]
     Route: 065
  7. WARFARIN [Concomitant]
     Route: 065
  8. SIOFOR [Concomitant]
     Route: 065
  9. FORMOTEROL [Concomitant]
     Route: 065
  10. ECOSAL [Concomitant]
     Route: 065
  11. ERDOMED [Concomitant]
     Route: 065

REACTIONS (2)
  - Condition aggravated [Unknown]
  - Drug ineffective [Unknown]
